FAERS Safety Report 9349124 (Version 1)
Quarter: 2013Q2

REPORT INFORMATION
  Report Type: Spontaneous
  Country: LT (occurrence: LT)
  Receive Date: 20130614
  Receipt Date: 20130614
  Transmission Date: 20140414
  Serious: Yes (Hospitalization)
  Sender: FDA-Public Use
  Company Number: LT-PFIZER INC-2013175055

PATIENT
  Age: 41 Year
  Sex: Male
  Weight: 50 kg

DRUGS (3)
  1. METHYLPREDNISOLONE [Suspect]
     Indication: IMMUNOSUPPRESSION
     Dosage: 8 MG
  2. AZATHIOPRINE [Suspect]
     Indication: IMMUNOSUPPRESSION
     Dosage: 50 MG
  3. CYCLOSPORINE [Suspect]
     Indication: IMMUNOSUPPRESSION
     Dosage: 150 MG

REACTIONS (1)
  - Diffuse large B-cell lymphoma [Recovered/Resolved]
